FAERS Safety Report 15287467 (Version 3)
Quarter: 2018Q4

REPORT INFORMATION
  Report Type: Spontaneous
  Country: US (occurrence: US)
  Receive Date: 20180817
  Receipt Date: 20181219
  Transmission Date: 20190204
  Serious: No
  Sender: FDA-Public Use
  Company Number: US-BEH-2018093887

PATIENT
  Age: 52 Year
  Sex: Female
  Weight: 65.31 kg

DRUGS (22)
  1. SUMATRIPTAN SUCCINATE. [Concomitant]
     Active Substance: SUMATRIPTAN SUCCINATE
  2. SUMATRIPTAN. [Concomitant]
     Active Substance: SUMATRIPTAN
  3. SODIUM CHLORIDE. [Concomitant]
     Active Substance: SODIUM CHLORIDE
  4. ALLEGRA [Concomitant]
     Active Substance: FEXOFENADINE HYDROCHLORIDE
  5. EPINEPHRINE. [Concomitant]
     Active Substance: EPINEPHRINE
  6. DIPHENHYDRAMINE. [Concomitant]
     Active Substance: DIPHENHYDRAMINE
  7. STERILE WATER [Concomitant]
     Active Substance: WATER
  8. ALBUTEROL                          /00139501/ [Concomitant]
     Active Substance: ALBUTEROL
  9. NORMAL SALINE [Concomitant]
     Active Substance: SODIUM CHLORIDE
  10. HAEGARDA [Suspect]
     Active Substance: HUMAN C1-ESTERASE INHIBITOR
     Indication: PROPHYLAXIS
     Dosage: 4000 IU, BIW
     Route: 058
     Dates: start: 20180716
  11. BERINERT [Suspect]
     Active Substance: HUMAN C1-ESTERASE INHIBITOR
     Indication: HEREDITARY ANGIOEDEMA
     Dosage: UNK
     Route: 042
  12. LIDOCAINE/PRILOCAINE [Concomitant]
     Active Substance: LIDOCAINE\PRILOCAINE
  13. HAEGARDA [Suspect]
     Active Substance: HUMAN C1-ESTERASE INHIBITOR
     Indication: HEREDITARY ANGIOEDEMA
     Dosage: UNK
     Route: 058
  14. HAEGARDA [Suspect]
     Active Substance: HUMAN C1-ESTERASE INHIBITOR
     Dosage: 4000 (UNITS NOT PROVIDED)
     Route: 065
     Dates: start: 20181102
  15. BERINERT [Suspect]
     Active Substance: HUMAN C1-ESTERASE INHIBITOR
     Dosage: 1500 IU, PRN (AS NEEDED)
     Route: 042
     Dates: start: 20160901
  16. KALBITOR [Concomitant]
     Active Substance: ECALLANTIDE
  17. FLONASE [Concomitant]
     Active Substance: FLUTICASONE PROPIONATE
  18. VERAPAMIL [Concomitant]
     Active Substance: VERAPAMIL HYDROCHLORIDE
  19. HAEGARDA [Suspect]
     Active Substance: HUMAN C1-ESTERASE INHIBITOR
     Indication: PROPHYLAXIS
     Dosage: 4000 (UNITS NOT REPORTED), EVERY 3-4 DAYS
     Route: 065
     Dates: end: 20181116
  20. FIRAZYR [Concomitant]
     Active Substance: ICATIBANT ACETATE
  21. PREDNISONE. [Concomitant]
     Active Substance: PREDNISONE
  22. PROZAC [Concomitant]
     Active Substance: FLUOXETINE HYDROCHLORIDE

REACTIONS (7)
  - Headache [Unknown]
  - Dizziness [Unknown]
  - Dizziness [Unknown]
  - Palpitations [Unknown]
  - Fatigue [Unknown]
  - Chest pain [Unknown]
  - Paraesthesia oral [Unknown]

NARRATIVE: CASE EVENT DATE: 20180801
